FAERS Safety Report 6164771-9 (Version None)
Quarter: 2009Q2

REPORT INFORMATION
  Report Type: 
  Country: None (occurrence: None)
  Receive Date: 20090423
  Receipt Date: 20090415
  Transmission Date: 20091009
  Serious: Yes (Other)
  Sender: FDA-Public Use
  Company Number: DK-BIOGENIDEC-2009BI011700

PATIENT
  Age: 64 Year
  Sex: Male

DRUGS (3)
  1. TYSABRI [Suspect]
     Indication: MULTIPLE SCLEROSIS
     Route: 042
     Dates: start: 20070515, end: 20090107
  2. NSAIDS [Concomitant]
  3. ANTIBIOTIC [Concomitant]

REACTIONS (1)
  - MALIGNANT MELANOMA [None]
